FAERS Safety Report 10663162 (Version 1)
Quarter: 2014Q4

REPORT INFORMATION
  Report Type: Spontaneous
  Country: US (occurrence: US)
  Receive Date: 20141218
  Receipt Date: 20141218
  Transmission Date: 20150529
  Serious: Yes (Death, Other)
  Sender: FDA-Public Use
  Company Number: PHHY2014US163636

PATIENT
  Age: 82 Year
  Sex: Male

DRUGS (2)
  1. CUBICIN [Suspect]
     Active Substance: DAPTOMYCIN
     Indication: STAPHYLOCOCCAL SEPSIS
     Route: 065
  2. DOXYCYCLINE. [Suspect]
     Active Substance: DOXYCYCLINE
     Indication: STAPHYLOCOCCAL SEPSIS
     Route: 065

REACTIONS (13)
  - Acute lung injury [Unknown]
  - Product use issue [Unknown]
  - Bronchiectasis [Fatal]
  - Respiratory failure [Unknown]
  - Interstitial lung disease [Fatal]
  - Pneumocystis jirovecii pneumonia [Unknown]
  - Oral candidiasis [Unknown]
  - Eosinophilic pneumonia [Unknown]
  - Eosinophilia [Unknown]
  - Asthenia [Unknown]
  - Nasal herpes [Unknown]
  - Viral infection [Unknown]
  - Pyrexia [Unknown]
